FAERS Safety Report 5486656-3 (Version None)
Quarter: 2007Q3

REPORT INFORMATION
  Report Type: 
  Country: None (occurrence: None)
  Receive Date: 20070925
  Receipt Date: 20070801
  Transmission Date: 20080115
  Serious: No
  Sender: FDA-Public Use
  Company Number: 2007US001795

PATIENT
  Age: 87 Year
  Sex: Female

DRUGS (6)
  1. VESICARE [Suspect]
     Indication: DRUG USE FOR UNKNOWN INDICATION
     Dosage: 5 MG, UID/QD,ORAL
     Route: 048
  2. DIOVAN [Concomitant]
  3. ZOCOR [Concomitant]
  4. ALLERGY MEDICATION [Concomitant]
  5. THYROID THERAPY [Concomitant]
  6. ASPIRIN [Concomitant]

REACTIONS (1)
  - CONSTIPATION [None]
